FAERS Safety Report 9554524 (Version 4)
Quarter: 2014Q1

REPORT INFORMATION
  Report Type: Report from Study
  Country: JP (occurrence: JP)
  Receive Date: 20130925
  Receipt Date: 20140318
  Transmission Date: 20141002
  Serious: Yes (Hospitalization, Other)
  Sender: FDA-Public Use
  Company Number: JP-BAXTER-2013BAX036576

PATIENT
  Age: 55 Year
  Sex: Male
  Weight: 69 kg

DRUGS (22)
  1. SUPRANE [Suspect]
     Indication: CHRONIC SINUSITIS
     Dosage: 3.5-3.8%
     Route: 055
     Dates: start: 20130801, end: 20130801
  2. SUPRANE [Suspect]
     Indication: MAXILLARY ANTRUM OPERATION
  3. ESLAX [Suspect]
     Indication: MUSCLE RELAXANT THERAPY
     Route: 042
     Dates: start: 20130801, end: 20130801
  4. ESLAX [Suspect]
     Dosage: 20 UNITS
     Route: 065
     Dates: start: 20131007, end: 20131007
  5. ESLAX [Suspect]
     Dosage: 2 UNITS
     Route: 065
     Dates: start: 20130912, end: 20130912
  6. ESLAX [Suspect]
     Dosage: 2 UNITS
     Route: 065
     Dates: start: 20131007, end: 20131007
  7. PROPOFOL [Concomitant]
     Indication: INDUCTION OF ANAESTHESIA
     Route: 042
     Dates: start: 20130801, end: 20130801
  8. EPHEDRIN [Concomitant]
     Indication: ANAESTHETIC COMPLICATION VASCULAR
     Route: 042
     Dates: start: 20130801, end: 20130801
  9. EPHEDRIN [Concomitant]
     Indication: PROPHYLAXIS
  10. TRAMAL [Concomitant]
     Indication: ANALGESIC THERAPY
     Route: 042
     Dates: start: 20130801, end: 20130801
  11. ROPION [Concomitant]
     Indication: ANALGESIC THERAPY
     Route: 042
     Dates: start: 20130801, end: 20130801
  12. BRIDION [Concomitant]
     Indication: ANAESTHESIA REVERSAL
     Route: 042
     Dates: start: 20130801, end: 20130801
  13. ULTIVA [Concomitant]
     Indication: INDUCTION OF ANAESTHESIA
     Dates: start: 20130801, end: 20130801
  14. ULTIVA [Concomitant]
     Indication: MAINTENANCE OF ANAESTHESIA
  15. CEFAZOLIN SODIUM [Concomitant]
     Indication: INFECTION PROPHYLAXIS
     Route: 042
     Dates: start: 20130801, end: 20130801
  16. CEFAZOLIN SODIUM [Concomitant]
     Dates: start: 20130801, end: 20130802
  17. ADONA [Concomitant]
     Indication: PROPHYLAXIS
     Dates: start: 20130801, end: 20130801
  18. ADONA [Concomitant]
     Indication: HAEMOSTASIS
  19. TRANSAMIN [Concomitant]
     Indication: PROPHYLAXIS
     Dates: start: 20130801, end: 20130801
  20. TRANSAMIN [Concomitant]
     Indication: HAEMOSTASIS
  21. MUCODYNE [Concomitant]
     Indication: PROPHYLAXIS
     Route: 048
     Dates: start: 20130802, end: 20130802
  22. MUCODYNE [Concomitant]
     Indication: RESPIRATORY THERAPY

REACTIONS (1)
  - Aplastic anaemia [Not Recovered/Not Resolved]
